FAERS Safety Report 6381485-0 (Version None)
Quarter: 2009Q3

REPORT INFORMATION
  Report Type: 
  Country: None (occurrence: None)
  Receive Date: 20090924
  Receipt Date: 20090914
  Transmission Date: 20100115
  Serious: Yes (Hospitalization, Other)
  Sender: FDA-Public Use
  Company Number: KV200900756

PATIENT
  Age: 75 Year
  Sex: Female
  Weight: 103.9 kg

DRUGS (5)
  1. MORPHINE SULFATE [Suspect]
     Indication: ABDOMINAL PAIN UPPER
     Dosage: 15 MG, 1 TABLET Q3H PRN, ORAL
     Route: 048
     Dates: start: 20080413, end: 20080401
  2. ASPIRIN [Concomitant]
  3. SYNTHROID [Concomitant]
  4. PROZAC [Concomitant]
  5. NEURONTIN [Concomitant]

REACTIONS (10)
  - BACK PAIN [None]
  - BILE DUCT STONE [None]
  - CARDIOMEGALY [None]
  - CHEST PAIN [None]
  - DYSPNOEA [None]
  - MUSCLE SPASMS [None]
  - NAUSEA [None]
  - PYREXIA [None]
  - RESPIRATORY ARREST [None]
  - WHEEZING [None]
